FAERS Safety Report 14598022 (Version 3)
Quarter: 2021Q1

REPORT INFORMATION
  Report Type: Other
  Country: CA (occurrence: CA)
  Receive Date: 20180305
  Receipt Date: 20210225
  Transmission Date: 20210419
  Serious: Yes (Hospitalization, Other)
  Sender: FDA-Public Use
  Company Number: CA-ROCHE-2081325

PATIENT
  Age: 78 Year
  Sex: Female

DRUGS (22)
  1. PANTOPRAZOLE [Concomitant]
     Active Substance: PANTOPRAZOLE
     Indication: GASTROOESOPHAGEAL REFLUX DISEASE
     Route: 048
     Dates: start: 1997
  2. XOLAIR [Suspect]
     Active Substance: OMALIZUMAB
     Dosage: UNK
     Route: 058
     Dates: start: 20170920
  3. XOLAIR [Suspect]
     Active Substance: OMALIZUMAB
     Dosage: UNK
     Route: 058
     Dates: start: 20180709
  4. SPIRIVA [Concomitant]
     Active Substance: TIOTROPIUM BROMIDE MONOHYDRATE
     Indication: ASTHMA
     Route: 055
     Dates: start: 2016
  5. XOLAIR [Suspect]
     Active Substance: OMALIZUMAB
     Dosage: UNK
     Route: 058
     Dates: start: 20191031
  6. XOLAIR [Suspect]
     Active Substance: OMALIZUMAB
     Dosage: UNK
     Route: 058
     Dates: start: 20201221
  7. VENTOLIN [Concomitant]
     Active Substance: ALBUTEROL SULFATE
     Indication: ASTHMA
     Route: 055
     Dates: start: 2012
  8. XOLAIR [Suspect]
     Active Substance: OMALIZUMAB
     Dosage: UNK
     Route: 058
     Dates: start: 20181129
  9. XOLAIR [Suspect]
     Active Substance: OMALIZUMAB
     Indication: ASTHMA
     Route: 058
     Dates: start: 20170405
  10. XOLAIR [Suspect]
     Active Substance: OMALIZUMAB
     Dosage: UNK
     Route: 058
     Dates: start: 20181101
  11. XOLAIR [Suspect]
     Active Substance: OMALIZUMAB
     Route: 058
     Dates: start: 20170418
  12. XOLAIR [Suspect]
     Active Substance: OMALIZUMAB
     Dosage: UNK
     Route: 058
     Dates: start: 20190531
  13. XOLAIR [Suspect]
     Active Substance: OMALIZUMAB
     Dosage: UNK
     Route: 058
     Dates: start: 20200122
  14. XOLAIR [Suspect]
     Active Substance: OMALIZUMAB
     Dosage: UNK
     Route: 058
  15. XOLAIR [Suspect]
     Active Substance: OMALIZUMAB
     Dosage: UNK
     Route: 058
     Dates: start: 20201202
  16. DOVONEX [Concomitant]
     Active Substance: CALCIPOTRIENE
     Indication: FACIAL PAIN
     Route: 061
     Dates: start: 2007
  17. TOLTERODINE [Concomitant]
     Active Substance: TOLTERODINE
     Indication: HYPERTONIC BLADDER
     Route: 048
     Dates: start: 1998
  18. XOLAIR [Suspect]
     Active Substance: OMALIZUMAB
     Dosage: UNK
     Route: 058
     Dates: start: 20181129
  19. XOLAIR [Suspect]
     Active Substance: OMALIZUMAB
     Dosage: UNK
     Route: 058
     Dates: start: 20200611
  20. ZENHALE [Concomitant]
     Active Substance: FORMOTEROL FUMARATE\MOMETASONE FUROATE
     Indication: ASTHMA
     Route: 055
     Dates: start: 2012
  21. OMNARIS [Concomitant]
     Active Substance: CICLESONIDE
     Indication: RHINITIS ALLERGIC
     Route: 055
     Dates: start: 2016
  22. SINGULAIR [Concomitant]
     Active Substance: MONTELUKAST SODIUM
     Indication: ASTHMA
     Route: 048
     Dates: start: 2012

REACTIONS (19)
  - Forced expiratory volume decreased [Unknown]
  - Dyspnoea [Unknown]
  - Fear of injection [Recovering/Resolving]
  - Product dose omission issue [Unknown]
  - Joint swelling [Unknown]
  - Productive cough [Not Recovered/Not Resolved]
  - Anxiety [Recovering/Resolving]
  - Inappropriate schedule of product administration [Unknown]
  - Nasopharyngitis [Not Recovered/Not Resolved]
  - Wrong patient received product [Unknown]
  - Dizziness [Recovering/Resolving]
  - Asthma [Unknown]
  - Peripheral swelling [Unknown]
  - Iliac artery occlusion [Unknown]
  - Pain in extremity [Unknown]
  - Cough [Not Recovered/Not Resolved]
  - Injection site pain [Unknown]
  - Blood pressure systolic increased [Unknown]
  - Neck pain [Unknown]

NARRATIVE: CASE EVENT DATE: 20170418
